FAERS Safety Report 21702888 (Version 1)
Quarter: 2022Q4

REPORT INFORMATION
  Report Type: Spontaneous
  Country: US (occurrence: US)
  Receive Date: 20221209
  Receipt Date: 20221209
  Transmission Date: 20230113
  Serious: Yes (Other)
  Sender: FDA-Public Use
  Company Number: US-drreddys-SPO/USA/22/0157958

PATIENT
  Age: 35 Year
  Sex: Male

DRUGS (2)
  1. TESTOSTERONE [Suspect]
     Active Substance: TESTOSTERONE
     Indication: Muscle building therapy
     Route: 030
  2. TESTOSTERONE [Suspect]
     Active Substance: TESTOSTERONE
     Indication: Hypogonadism

REACTIONS (6)
  - Papilloedema [Recovering/Resolving]
  - Visual acuity reduced [Recovering/Resolving]
  - Intracranial pressure increased [Recovering/Resolving]
  - Hypothalamic pituitary adrenal axis suppression [Recovering/Resolving]
  - Blood testosterone increased [Recovered/Resolved]
  - Incorrect dose administered [Recovering/Resolving]
